FAERS Safety Report 9719994 (Version 1)
Quarter: 2013Q4

REPORT INFORMATION
  Report Type: Report from Study
  Country: FR (occurrence: FR)
  Receive Date: 20131128
  Receipt Date: 20131128
  Transmission Date: 20140711
  Serious: Yes (Other)
  Sender: FDA-Public Use
  Company Number: FR-ROCHE-1311398

PATIENT
  Sex: 0

DRUGS (1)
  1. ALTEPLASE [Suspect]
     Indication: CEREBRAL ISCHAEMIA
     Dosage: 0.9 MG/KG, MAX. 90 MG, 10% AS BOLUS
     Route: 042

REACTIONS (2)
  - Neurological decompensation [Unknown]
  - Haemorrhage intracranial [Unknown]
